FAERS Safety Report 21349203 (Version 1)
Quarter: 2022Q3

REPORT INFORMATION
  Report Type: Spontaneous
  Country: US (occurrence: US)
  Receive Date: 20220919
  Receipt Date: 20220919
  Transmission Date: 20221027
  Serious: No
  Sender: FDA-Public Use
  Company Number: US-GILEAD-2022-0597781

PATIENT
  Age: 61 Year
  Sex: Male

DRUGS (7)
  1. SOFOSBUVIR\VELPATASVIR [Suspect]
     Active Substance: SOFOSBUVIR\VELPATASVIR
     Indication: Chronic hepatitis C
     Dosage: 1 DOSAGE FORM, QD
     Route: 048
  2. METHOCARBAMOL [Concomitant]
     Active Substance: METHOCARBAMOL
  3. DULOXETINE HYDROCHLORIDE [Concomitant]
     Active Substance: DULOXETINE HYDROCHLORIDE
  4. PRAVASTATIN SODIUM [Concomitant]
     Active Substance: PRAVASTATIN SODIUM
  5. LISINOPRIL [Concomitant]
     Active Substance: LISINOPRIL
  6. TAMSULOSIN HYDROCHLORIDE [Concomitant]
     Active Substance: TAMSULOSIN HYDROCHLORIDE
  7. REPATHA [Concomitant]
     Active Substance: EVOLOCUMAB

REACTIONS (6)
  - Depression [Unknown]
  - Drug ineffective [Unknown]
  - Back disorder [Unknown]
  - Sciatica [Unknown]
  - Pulmonary mass [Unknown]
  - Blood cholesterol abnormal [Unknown]
